FAERS Safety Report 9188592 (Version 2)
Quarter: 2012Q4

REPORT INFORMATION
  Report Type: 
  Country: US (occurrence: US)
  Receive Date: 20121212
  Receipt Date: 20121214
  Transmission Date: 20130627
  Serious: Yes (Hospitalization, Other)
  Sender: FDA-Public Use
  Company Number: US-RB-047561-12

PATIENT
  Age: 26 Year
  Sex: Male

DRUGS (3)
  1. SUBOXONE TABLETS [Suspect]
     Indication: DRUG DEPENDENCE
     Route: 060
     Dates: start: 2009, end: 2011
  2. SUBOXONE FILM [Suspect]
     Indication: DRUG DEPENDENCE
     Dosage: Suboxone film
     Route: 060
     Dates: start: 2011, end: 201211
  3. XANAX [Concomitant]
     Indication: PRODUCT USED FOR UNKNOWN INDICATION
     Dosage: Dosing details unknown
     Route: 065
     Dates: end: 2011

REACTIONS (2)
  - Abdominal pain [Recovered/Resolved]
  - Gallbladder disorder [Recovered/Resolved]
